FAERS Safety Report 13521766 (Version 5)
Quarter: 2017Q3

REPORT INFORMATION
  Report Type: Spontaneous
  Country: JP (occurrence: JP)
  Receive Date: 20170508
  Receipt Date: 20170901
  Transmission Date: 20171127
  Serious: Yes (Death, Hospitalization)
  Sender: FDA-Public Use
  Company Number: JP-ASTRAZENECA-2017SE40446

PATIENT
  Age: 81 Year
  Sex: Female
  Weight: 42 kg

DRUGS (19)
  1. RINDERON V [Concomitant]
     Active Substance: BETAMETHASONE VALERATE
     Indication: NEOPLASM MALIGNANT
     Dosage: TWO TO THREE TIMES DAILY
     Route: 048
     Dates: start: 20160529, end: 20160721
  2. FAMOTIDINE. [Concomitant]
     Active Substance: FAMOTIDINE
     Indication: PROPHYLAXIS
     Route: 048
     Dates: start: 20160525, end: 20161116
  3. NEXIUM [Concomitant]
     Active Substance: ESOMEPRAZOLE MAGNESIUM
     Indication: UPPER GASTROINTESTINAL HAEMORRHAGE
     Route: 048
     Dates: start: 20160525, end: 20170427
  4. IRESSA [Suspect]
     Active Substance: GEFITINIB
     Indication: LUNG ADENOCARCINOMA
     Route: 048
     Dates: start: 20160721, end: 20170316
  5. RINDERON V [Concomitant]
     Active Substance: BETAMETHASONE VALERATE
     Indication: DRUG ERUPTION
     Route: 048
     Dates: start: 20170412, end: 20170427
  6. DIGOXIN. [Concomitant]
     Active Substance: DIGOXIN
     Indication: CARDIAC FAILURE
     Route: 048
     Dates: start: 20160721, end: 20170427
  7. ULCERLMIN [Concomitant]
     Active Substance: SUCRALFATE
     Route: 065
  8. OXYCONTIN [Concomitant]
     Active Substance: OXYCODONE HYDROCHLORIDE
     Route: 048
  9. IRESSA [Suspect]
     Active Substance: GEFITINIB
     Indication: LUNG ADENOCARCINOMA
     Route: 048
     Dates: start: 20160421, end: 20160622
  10. RINDERON V [Concomitant]
     Active Substance: BETAMETHASONE VALERATE
     Indication: DRUG ERUPTION
     Dosage: TWO TO THREE TIMES DAILY
     Route: 048
     Dates: start: 20160529, end: 20160721
  11. VALTREX [Concomitant]
     Active Substance: VALACYCLOVIR HYDROCHLORIDE
     Indication: GENITAL INFECTION VIRAL
     Route: 048
     Dates: start: 20170222, end: 20170314
  12. LOXONIN [Concomitant]
     Active Substance: LOXOPROFEN SODIUM
     Indication: PAIN
     Route: 048
     Dates: start: 20160331, end: 20170220
  13. NOVAMIN (PROCHLORPERAZINE) [Concomitant]
     Active Substance: PROCHLORPERAZINE
     Route: 048
  14. ALINAMIN F [Concomitant]
     Active Substance: FURSULTIAMINE HYDROCHLORIDE
     Route: 048
  15. DEPAS [Concomitant]
     Active Substance: ETIZOLAM
     Indication: INSOMNIA
     Route: 048
     Dates: start: 20160525, end: 20170301
  16. RINDERON V [Concomitant]
     Active Substance: BETAMETHASONE VALERATE
     Indication: DRUG ERUPTION
     Route: 048
     Dates: start: 20161215, end: 20170411
  17. RINDERON V [Concomitant]
     Active Substance: BETAMETHASONE VALERATE
     Indication: NEOPLASM MALIGNANT
     Route: 048
     Dates: start: 20170412, end: 20170427
  18. TAGRISSO [Suspect]
     Active Substance: OSIMERTINIB
     Indication: NON-SMALL CELL LUNG CANCER
     Route: 048
     Dates: start: 20170317, end: 20170411
  19. RINDERON V [Concomitant]
     Active Substance: BETAMETHASONE VALERATE
     Indication: NEOPLASM MALIGNANT
     Route: 048
     Dates: start: 20161215, end: 20170411

REACTIONS (4)
  - Drug eruption [Not Recovered/Not Resolved]
  - Pulmonary fibrosis [Not Recovered/Not Resolved]
  - Malignant neoplasm progression [Fatal]
  - Interstitial lung disease [Not Recovered/Not Resolved]

NARRATIVE: CASE EVENT DATE: 2016
